FAERS Safety Report 8302486-9 (Version None)
Quarter: 2012Q1

REPORT INFORMATION
  Report Type: 
  Country: None (occurrence: None)
  Receive Date: 20120326
  Receipt Date: 20111228
  Transmission Date: 20120608
  Serious: Yes (Other)
  Sender: FDA-Public Use
  Company Number: PHEH2011US012627

PATIENT
  Age: 68 Year
  Sex: Female

DRUGS (2)
  1. HAWTHORN BERRY (CRATAEGUS LAEVIGATA, CRATAEGUS OXYACANTHA) [Concomitant]
  2. TASIGNA [Suspect]
     Indication: CHRONIC MYELOID LEUKAEMIA
     Dosage: 400 MG, DAILY, ORAL
     Route: 048
     Dates: start: 20110611

REACTIONS (1)
  - BLOOD PRESSURE INCREASED [None]
